FAERS Safety Report 16097862 (Version 2)
Quarter: 2019Q1

REPORT INFORMATION
  Report Type: Spontaneous
  Country: US (occurrence: US)
  Receive Date: 20190320
  Receipt Date: 20190321
  Transmission Date: 20190418
  Serious: Yes (Other)
  Sender: FDA-Public Use
  Company Number: PHEH2019US011349

PATIENT
  Sex: Female

DRUGS (4)
  1. ZOMETA [Suspect]
     Active Substance: ZOLEDRONIC ACID
     Dosage: (EVERY THREE MONTHS NOW)
     Route: 065
  2. DARZALEX [Concomitant]
     Active Substance: DARATUMUMAB
     Indication: PRODUCT USED FOR UNKNOWN INDICATION
     Dosage: UNK
     Route: 065
     Dates: start: 20160418
  3. ZOMETA [Suspect]
     Active Substance: ZOLEDRONIC ACID
     Indication: BONE CANCER
     Dosage: (FEW TIMES A WEEK)
     Route: 065
     Dates: start: 20160418
  4. ZOMETA [Suspect]
     Active Substance: ZOLEDRONIC ACID
     Indication: PLASMA CELL MYELOMA
     Dosage: UNK
     Route: 065
     Dates: start: 2010

REACTIONS (8)
  - Abdominal pain upper [Unknown]
  - Nausea [Unknown]
  - Drug intolerance [Unknown]
  - Eating disorder [Unknown]
  - Gingival bleeding [Unknown]
  - Abdominal discomfort [Unknown]
  - Dental caries [Unknown]
  - Thrombosis [Unknown]
